FAERS Safety Report 8844589 (Version 1)
Quarter: 2012Q4

REPORT INFORMATION
  Report Type: Spontaneous
  Country: US (occurrence: None)
  Receive Date: 20120928
  Receipt Date: 20120928
  Transmission Date: 20130627
  Serious: Yes (Hospitalization)
  Sender: FDA-Public Use
  Company Number: None

PATIENT
  Age: 55 Year
  Sex: Female
  Weight: 69.85 kg

DRUGS (9)
  1. SORAFENIB [Suspect]
     Indication: OVARIAN CANCER
     Dosage: 200 MG P.O. BID
     Route: 048
     Dates: start: 20120802
  2. HYDROXYCHLOROQUINE [Suspect]
     Indication: OVARIAN CANCER
     Dosage: 200 MG PO QD
     Route: 048
     Dates: start: 20120830
  3. NIFEDICAL XL [Concomitant]
  4. LISINOPRIL [Concomitant]
  5. POTASSIUM [Concomitant]
  6. HYDROCODONE APAP [Concomitant]
  7. EFFEXOR [Concomitant]
  8. CALCIUM [Concomitant]
  9. 1-A DAY WOMEN^S MULTIVITAMIN [Concomitant]

REACTIONS (5)
  - Abdominal pain [None]
  - Nausea [None]
  - Vomiting [None]
  - Constipation [None]
  - Ascites [None]
